FAERS Safety Report 18773845 (Version 1)
Quarter: 2021Q1

REPORT INFORMATION
  Report Type: Report from Study
  Country: CA (occurrence: CA)
  Receive Date: 20210122
  Receipt Date: 20210122
  Transmission Date: 20210419
  Serious: Yes (Other)
  Sender: FDA-Public Use
  Company Number: CA-JNJFOC-20200843894

PATIENT
  Age: 38 Year
  Sex: Male

DRUGS (1)
  1. REMICADE [Suspect]
     Active Substance: INFLIXIMAB
     Indication: PRODUCT USED FOR UNKNOWN INDICATION
     Dosage: PATIENT HAD LAST INFUSION ON 06 JUL 2020 WITH BATCH LOT KCM48012 AND EXP FEB 2023.
     Route: 042

REACTIONS (4)
  - Abdominal distension [Unknown]
  - Hepatic cancer [Unknown]
  - Abdominal pain [Unknown]
  - Colon cancer [Unknown]

NARRATIVE: CASE EVENT DATE: 202007
